FAERS Safety Report 11347866 (Version 1)
Quarter: 2015Q3

REPORT INFORMATION
  Report Type: Spontaneous
  Country: US (occurrence: US)
  Receive Date: 20150803
  Receipt Date: 20150803
  Transmission Date: 20151125
  Serious: No
  Sender: FDA-Public Use
  Company Number: US-ELI_LILLY_AND_COMPANY-US201111006390

PATIENT
  Age: 40 Year
  Sex: Female

DRUGS (1)
  1. ZYPREXA [Suspect]
     Active Substance: OLANZAPINE
     Indication: SCHIZOPHRENIA
     Dosage: 15 MG, OTHER
     Dates: start: 1996, end: 20111111

REACTIONS (11)
  - Anxiety [Unknown]
  - Hyperhidrosis [Unknown]
  - Intentional product misuse [Unknown]
  - Adverse drug reaction [Unknown]
  - Withdrawal syndrome [Unknown]
  - Hypertension [Unknown]
  - Dyspnoea [Unknown]
  - Diabetes mellitus [Unknown]
  - Cardiac disorder [Unknown]
  - Depressed mood [Unknown]
  - Feeling abnormal [Unknown]

NARRATIVE: CASE EVENT DATE: 201005
